FAERS Safety Report 24837156 (Version 1)
Quarter: 2025Q1

REPORT INFORMATION
  Report Type: Spontaneous
  Country: FR (occurrence: FR)
  Receive Date: 20250113
  Receipt Date: 20250113
  Transmission Date: 20250408
  Serious: Yes (Hospitalization, Other)
  Sender: LUNDBECK
  Company Number: FR-DialogSolutions-SAAVPROD-PI728012-C2

PATIENT

DRUGS (4)
  1. VIGABATRIN [Suspect]
     Active Substance: VIGABATRIN
     Indication: Seizure
  2. CARBAMAZEPINE [Concomitant]
     Active Substance: CARBAMAZEPINE
     Indication: Seizure
  3. CLONAZEPAM [Concomitant]
     Active Substance: CLONAZEPAM
     Indication: Seizure
  4. VALPROATE [Concomitant]
     Active Substance: VALPROIC ACID
     Indication: Seizure

REACTIONS (9)
  - Hyperprolinaemia [Recovering/Resolving]
  - Condition aggravated [Recovering/Resolving]
  - Generalised tonic-clonic seizure [Recovering/Resolving]
  - Status epilepticus [Recovering/Resolving]
  - Developmental delay [Recovering/Resolving]
  - Hemiclonic seizure [Recovering/Resolving]
  - Psychomotor disadaptation syndrome [Recovering/Resolving]
  - Hypotonia [Recovering/Resolving]
  - Atonic seizures [Recovering/Resolving]
